FAERS Safety Report 12495136 (Version 11)
Quarter: 2017Q4

REPORT INFORMATION
  Report Type: Report from Study
  Country: FR (occurrence: FR)
  Receive Date: 20160624
  Receipt Date: 20171110
  Transmission Date: 20180320
  Serious: Yes (Death, Hospitalization, Other)
  Sender: FDA-Public Use
  Company Number: PHHY2016FR030752

PATIENT
  Age: 62 Year
  Sex: Female
  Weight: 64 kg

DRUGS (5)
  1. AFINITOR [Suspect]
     Active Substance: EVEROLIMUS
     Indication: PANCREATIC NEUROENDOCRINE TUMOUR
     Dosage: 10 MG, QD
     Route: 065
     Dates: start: 20150908, end: 20160531
  2. PREVISCAN (FLUINDIONE) [Concomitant]
     Active Substance: FLUINDIONE
     Indication: SUBCLAVIAN VEIN THROMBOSIS
     Dosage: UNK
     Route: 048
     Dates: start: 201512
  3. SOMATULINE LP [Concomitant]
     Active Substance: LANREOTIDE ACETATE
     Indication: PANCREATIC NEUROENDOCRINE TUMOUR
     Dosage: 120 MG, UNK
     Route: 030
     Dates: start: 20130801
  4. INNOHEP [Concomitant]
     Active Substance: TINZAPARIN SODIUM
     Indication: PRODUCT USED FOR UNKNOWN INDICATION
     Dosage: UNK
     Route: 058
     Dates: end: 201512
  5. TAHOR [Suspect]
     Active Substance: ATORVASTATIN CALCIUM
     Indication: HYPERCHOLESTEROLAEMIA
     Dosage: 10 MG, QD
     Route: 048
     Dates: start: 20151023

REACTIONS (28)
  - Treatment failure [Fatal]
  - Febrile neutropenia [Recovered/Resolved]
  - Ear infection [Unknown]
  - Weight decreased [Unknown]
  - Bone pain [Unknown]
  - Nasal discomfort [Recovered/Resolved]
  - Malignant neoplasm progression [Fatal]
  - Jaundice [Fatal]
  - General physical health deterioration [Not Recovered/Not Resolved]
  - Hypertriglyceridaemia [Recovered/Resolved]
  - Mucosal inflammation [Recovered/Resolved]
  - Pulmonary mass [Unknown]
  - Burning sensation mucosal [Not Recovered/Not Resolved]
  - Nasal crusting [Unknown]
  - Cholestasis [Fatal]
  - Concomitant disease aggravated [Recovered/Resolved]
  - Headache [Recovered/Resolved]
  - Hepatomegaly [Fatal]
  - Ascites [Fatal]
  - Interstitial lung disease [Recovered/Resolved]
  - Epistaxis [Unknown]
  - Anaemia [Not Recovered/Not Resolved]
  - Pancreatic neuroendocrine tumour [Fatal]
  - Hypercholesterolaemia [Recovered/Resolved]
  - Rhinalgia [Unknown]
  - Aphthous ulcer [Recovered/Resolved]
  - Ear infection [Recovered/Resolved]
  - Mucosal inflammation [Recovered/Resolved]

NARRATIVE: CASE EVENT DATE: 2015
